FAERS Safety Report 12176551 (Version 1)
Quarter: 2016Q1

REPORT INFORMATION
  Report Type: Spontaneous
  Country: FR (occurrence: FR)
  Receive Date: 20160315
  Receipt Date: 20160315
  Transmission Date: 20160526
  Serious: Yes (Death, Hospitalization)
  Sender: FDA-Public Use
  Company Number: FR-ROCHE-1725077

PATIENT
  Age: 63 Year
  Sex: Male

DRUGS (11)
  1. PREVISCAN (FRANCE) [Concomitant]
     Active Substance: FLUINDIONE
  2. ZOPHREN [Concomitant]
     Active Substance: ONDANSETRON
  3. REVITALOSE [Concomitant]
  4. ONCOVIN [Suspect]
     Active Substance: VINCRISTINE SULFATE
     Indication: LYMPHOMA
     Route: 042
     Dates: start: 201505, end: 20150916
  5. PROCORALAN [Concomitant]
     Active Substance: IVABRADINE
  6. LASILIX [Concomitant]
     Active Substance: FUROSEMIDE
     Route: 065
  7. MABTHERA [Suspect]
     Active Substance: RITUXIMAB
     Indication: LYMPHOMA
     Route: 042
     Dates: start: 201505, end: 20150916
  8. ENDOXAN [Suspect]
     Active Substance: CYCLOPHOSPHAMIDE
     Indication: LYMPHOMA
     Route: 042
     Dates: start: 201505, end: 20150916
  9. RAMIPRIL. [Concomitant]
     Active Substance: RAMIPRIL
  10. BACTRIM [Suspect]
     Active Substance: SULFAMETHOXAZOLE\TRIMETHOPRIM
     Indication: OPPORTUNISTIC INFECTION PROPHYLAXIS
     Route: 048
     Dates: start: 20150916, end: 201510
  11. PREDNISONE. [Suspect]
     Active Substance: PREDNISONE
     Indication: LYMPHOMA
     Route: 042
     Dates: start: 201509, end: 201509

REACTIONS (2)
  - Hepatitis B [Fatal]
  - Condition aggravated [Fatal]

NARRATIVE: CASE EVENT DATE: 20151001
